FAERS Safety Report 11990636 (Version 4)
Quarter: 2016Q4

REPORT INFORMATION
  Report Type: Report from Study
  Country: DE (occurrence: DE)
  Receive Date: 20160202
  Receipt Date: 20161114
  Transmission Date: 20170206
  Serious: Yes (Life-Threatening, Hospitalization, Other)
  Sender: FDA-Public Use
  Company Number: DE-BAYER-2015-440912

PATIENT
  Age: 86 Year
  Sex: Male
  Weight: 170 kg

DRUGS (6)
  1. RIVAROXABAN [Interacting]
     Active Substance: RIVAROXABAN
     Dosage: UNK
  2. HEPARIN [Concomitant]
     Active Substance: HEPARIN SODIUM
     Dosage: 200 IU, UNK
     Dates: start: 20140713, end: 20140714
  3. ENOXAPARIN [Concomitant]
     Active Substance: ENOXAPARIN
     Dosage: 60 MG, BID
  4. ASPIRIN. [Suspect]
     Active Substance: ASPIRIN
     Dosage: UNK
  5. HEPARIN [Concomitant]
     Active Substance: HEPARIN SODIUM
     Dosage: 400 DF, UNK
     Route: 042
     Dates: start: 20140715, end: 20140715
  6. HEPARIN [Concomitant]
     Active Substance: HEPARIN SODIUM
     Dosage: 100 DF, UNK
     Route: 042
     Dates: start: 20140714, end: 20140715

REACTIONS (8)
  - Fall [None]
  - Respiratory failure [None]
  - Labelled drug-drug interaction medication error [None]
  - Pleural effusion [Recovered/Resolved]
  - Mouth haemorrhage [Not Recovered/Not Resolved]
  - Facial bones fracture [Not Recovered/Not Resolved]
  - Epistaxis [Recovered/Resolved]
  - Hyperglycaemia [Recovered/Resolved]

NARRATIVE: CASE EVENT DATE: 20140713
